FAERS Safety Report 10337953 (Version 1)
Quarter: 2014Q3

REPORT INFORMATION
  Report Type: Spontaneous
  Country: US (occurrence: None)
  Receive Date: 20140722
  Receipt Date: 20140722
  Transmission Date: 20150326
  Serious: Yes (Other)
  Sender: FDA-Public Use
  Company Number: None

PATIENT
  Age: 18 Year
  Sex: Male
  Weight: 58.97 kg

DRUGS (1)
  1. LEXAPRO [Suspect]
     Active Substance: ESCITALOPRAM OXALATE
     Indication: GENERALISED ANXIETY DISORDER
     Route: 048

REACTIONS (5)
  - Product substitution issue [None]
  - Irritability [None]
  - Drug effect decreased [None]
  - Tearfulness [None]
  - Mood swings [None]

NARRATIVE: CASE EVENT DATE: 20130709
